FAERS Safety Report 23503281 (Version 2)
Quarter: 2024Q1

REPORT INFORMATION
  Report Type: Other
  Country: US (occurrence: US)
  Receive Date: 20240208
  Receipt Date: 20240321
  Transmission Date: 20240410
  Serious: Yes (Death)
  Sender: FDA-Public Use
  Company Number: US-INTERCEPT-PM2024000193

PATIENT
  Age: 58 Year
  Sex: Female

DRUGS (10)
  1. OCALIVA [Suspect]
     Active Substance: OBETICHOLIC ACID
     Indication: Primary biliary cholangitis
     Dosage: 5 MILLIGRAM, QD
     Route: 048
     Dates: start: 20220512, end: 20230929
  2. URSODIOL [Concomitant]
     Active Substance: URSODIOL
  3. PREDNISONE [Concomitant]
     Active Substance: PREDNISONE
  4. ORENCIA [Concomitant]
     Active Substance: ABATACEPT
  5. GLUCOSAMINE CHONDROITIN CALCIUM [Concomitant]
  6. HERBALS\TURMERIC [Concomitant]
     Active Substance: HERBALS\TURMERIC
  7. ADVIL [Concomitant]
     Active Substance: IBUPROFEN
  8. CYANOCOBALAMIN [Concomitant]
     Active Substance: CYANOCOBALAMIN
  9. OMEGA-3 FATTY ACIDS [Concomitant]
     Active Substance: OMEGA-3 FATTY ACIDS
  10. GABAPENTIN [Concomitant]
     Active Substance: GABAPENTIN
     Indication: Herpes zoster

REACTIONS (2)
  - Multiple organ dysfunction syndrome [Fatal]
  - Immune system disorder [Unknown]

NARRATIVE: CASE EVENT DATE: 20231015
